FAERS Safety Report 10307409 (Version 7)
Quarter: 2015Q3

REPORT INFORMATION
  Report Type: Report from Study
  Country: RU (occurrence: RU)
  Receive Date: 20140716
  Receipt Date: 20150909
  Transmission Date: 20151125
  Serious: Yes (Life-Threatening)
  Sender: FDA-Public Use
  Company Number: RU-ROCHE-1151815

PATIENT
  Age: 65 Year
  Sex: Female
  Weight: 62 kg

DRUGS (13)
  1. OBINUTUZUMAB [Suspect]
     Active Substance: OBINUTUZUMAB
     Indication: NON-HODGKIN^S LYMPHOMA UNSPECIFIED HISTOLOGY INDOLENT
     Dosage: DATE OF LAST DOSE:25/OCT/2012
     Route: 042
     Dates: start: 20121018
  2. CORDAFLEX [Concomitant]
     Active Substance: NIFEDIPINE
     Indication: HYPERTENSION
     Route: 065
     Dates: end: 20121031
  3. CLEXANE [Concomitant]
     Active Substance: ENOXAPARIN SODIUM
     Indication: CARDIAC FAILURE CHRONIC
     Route: 065
     Dates: start: 20121029, end: 20121111
  4. LASIX [Concomitant]
     Active Substance: FUROSEMIDE
     Indication: CARDIAC FAILURE CHRONIC
     Route: 065
     Dates: start: 20121030, end: 20121111
  5. TRAMADOL. [Concomitant]
     Active Substance: TRAMADOL
     Indication: PAIN
     Route: 065
     Dates: end: 20121031
  6. BENDAMUSTINE [Suspect]
     Active Substance: BENDAMUSTINE
     Indication: NON-HODGKIN^S LYMPHOMA UNSPECIFIED HISTOLOGY INDOLENT
     Dosage: DATE OF LAST DOSE:19/OCT/2012
     Route: 042
     Dates: start: 20121018
  7. CARDIOMAGNYL [Concomitant]
     Active Substance: ASPIRIN\MAGNESIUM HYDROXIDE
     Indication: CARDIAC FAILURE CHRONIC
     Route: 065
     Dates: end: 20121031
  8. VEROSPIRON [Concomitant]
     Active Substance: SPIRONOLACTONE
     Indication: CARDIAC FAILURE CHRONIC
     Route: 065
     Dates: start: 20121029, end: 20121031
  9. LORISTA [Concomitant]
     Active Substance: LOSARTAN POTASSIUM
     Indication: CARDIAC FAILURE CHRONIC
     Route: 065
     Dates: start: 20121029, end: 20121031
  10. ATENOLOL. [Concomitant]
     Active Substance: ATENOLOL
     Indication: HYPERTENSION
     Route: 065
     Dates: end: 20121029
  11. EUPHYLLIN (AMINOPHYLLINE) [Concomitant]
     Indication: CARDIAC FAILURE CHRONIC
     Route: 065
     Dates: start: 20121030, end: 20121030
  12. CORAXAN (RUSSIA) [Concomitant]
     Indication: CARDIAC FAILURE CHRONIC
     Route: 065
     Dates: start: 20121031, end: 20121111
  13. QUAMATEL [Concomitant]
     Route: 065
     Dates: start: 20121101, end: 20121111

REACTIONS (1)
  - Cardiac failure [Not Recovered/Not Resolved]

NARRATIVE: CASE EVENT DATE: 20121101
